FAERS Safety Report 8409546-2 (Version None)
Quarter: 2012Q2

REPORT INFORMATION
  Report Type: 
  Country: None (occurrence: None)
  Receive Date: 20120323
  Receipt Date: 20110103
  Transmission Date: 20120825
  Serious: Yes (Hospitalization)
  Sender: FDA-Public Use
  Company Number: 163-21880-11010348

PATIENT
  Age: 88 Year
  Sex: Male

DRUGS (11)
  1. UROXATRAL [Concomitant]
  2. ASTELIN (AZELASTINE HYDROCHLORIDE) (SPRAY (NOT INHALATION)) [Concomitant]
  3. COREG [Concomitant]
  4. FOLIC ACID [Concomitant]
  5. NIACIN [Concomitant]
  6. LASIX [Concomitant]
  7. REVLIMID [Suspect]
     Indication: MULTIPLE MYELOMA
     Dosage: 10 MG, PO
     Route: 048
     Dates: start: 20101112, end: 20101227
  8. ASPIRIN [Concomitant]
  9. LISINOPRIL [Concomitant]
  10. HYDROCHLOROTHIAZIDE [Concomitant]
  11. COUMADIN [Concomitant]

REACTIONS (1)
  - CARDIAC FAILURE CONGESTIVE [None]
